FAERS Safety Report 19107408 (Version 1)
Quarter: 2021Q2

REPORT INFORMATION
  Report Type: Spontaneous
  Country: US (occurrence: US)
  Receive Date: 20210408
  Receipt Date: 20210408
  Transmission Date: 20210717
  Serious: Yes (Hospitalization)
  Sender: FDA-Public Use
  Company Number: None

PATIENT
  Age: 66 Year
  Sex: Male
  Weight: 74 kg

DRUGS (1)
  1. ATORVASTATIN (ASTORVASTATIIN CA 40MG TAB) [Suspect]
     Active Substance: ATORVASTATIN CALCIUM
     Indication: CORONARY ARTERY DISEASE
     Route: 048
     Dates: start: 20190731, end: 20210405

REACTIONS (4)
  - Acute kidney injury [None]
  - Myalgia [None]
  - Hepatic enzyme increased [None]
  - Rhabdomyolysis [None]

NARRATIVE: CASE EVENT DATE: 20210405
